FAERS Safety Report 24961648 (Version 4)
Quarter: 2025Q3

REPORT INFORMATION
  Report Type: Report from Study
  Country: US (occurrence: US)
  Receive Date: 20250212
  Receipt Date: 20250930
  Transmission Date: 20251021
  Serious: Yes (Hospitalization, Other)
  Sender: ABBVIE
  Company Number: US-ABBVIE-6128073

PATIENT
  Age: 69 Year
  Sex: Female

DRUGS (4)
  1. VENCLEXTA [Suspect]
     Active Substance: VENETOCLAX
     Indication: Plasma cell myeloma
     Route: 048
     Dates: start: 2020
  2. VENCLEXTA [Suspect]
     Active Substance: VENETOCLAX
     Indication: Plasma cell myeloma
     Route: 048
     Dates: start: 202504
  3. VENCLEXTA [Suspect]
     Active Substance: VENETOCLAX
     Indication: Plasma cell myeloma
     Dosage: STRENGTH:100 MG?TAKE 8 TABLET(S) BY MOUTH EVERY DAY WITH FOOD AND WATER
     Route: 048
     Dates: start: 202102, end: 20250321
  4. KYPROLIS [Concomitant]
     Active Substance: CARFILZOMIB
     Indication: Product used for unknown indication

REACTIONS (7)
  - Colon cancer [Recovered/Resolved]
  - Off label use [Unknown]
  - Wound [Recovered/Resolved]
  - Thinking abnormal [Unknown]
  - Memory impairment [Not Recovered/Not Resolved]
  - Colon cancer [Unknown]
  - Deafness [Not Recovered/Not Resolved]

NARRATIVE: CASE EVENT DATE: 20240801
